FAERS Safety Report 5857950-9 (Version None)
Quarter: 2008Q3

REPORT INFORMATION
  Report Type: 
  Country: None (occurrence: None)
  Receive Date: 20080826
  Receipt Date: 20080818
  Transmission Date: 20090109
  Serious: Yes (Other)
  Sender: FDA-Public Use
  Company Number: US-ASTRAZENECA-2008UW16711

PATIENT
  Age: 62 Year
  Sex: Female
  Weight: 49 kg

DRUGS (7)
  1. ARIMIDEX [Suspect]
     Indication: BREAST CANCER
     Route: 048
  2. AVALIDE [Concomitant]
  3. ATENOLOL [Concomitant]
  4. SYNTHROID [Concomitant]
  5. BONIVA [Concomitant]
  6. CRESTOR [Concomitant]
  7. METFORMIN HCL [Concomitant]

REACTIONS (2)
  - DIABETES MELLITUS [None]
  - OEDEMA PERIPHERAL [None]
